FAERS Safety Report 8834807 (Version 1)
Quarter: 2012Q4

REPORT INFORMATION
  Report Type: 
  Country: US (occurrence: US)
  Receive Date: 20121010
  Receipt Date: 20121010
  Transmission Date: 20130627
  Serious: Yes (Death)
  Sender: FDA-Public Use
  Company Number: US-GLAXOSMITHKLINE-A0996732A

PATIENT
  Age: 45 Year
  Sex: Female

DRUGS (5)
  1. TYKERB [Suspect]
     Indication: BREAST CANCER
     Dosage: 1250MG Per day
     Route: 048
     Dates: start: 20111219
  2. SYNTHROID [Concomitant]
  3. PAXIL [Concomitant]
  4. TEMAZEPAM [Concomitant]
  5. XELODA [Concomitant]

REACTIONS (1)
  - Death [Fatal]
